FAERS Safety Report 6394711-9 (Version None)
Quarter: 2009Q4

REPORT INFORMATION
  Report Type: 
  Country: None (occurrence: None)
  Receive Date: 20091009
  Receipt Date: 20090929
  Transmission Date: 20100525
  Serious: Yes (Hospitalization)
  Sender: FDA-Public Use
  Company Number: US-NOVOPROD-292243

PATIENT
  Sex: Male

DRUGS (2)
  1. NOVOLOG [Suspect]
     Indication: DIABETES MELLITUS
     Dosage: SLIDING SCALE
     Route: 058
     Dates: start: 20060101
  2. LANTUS [Suspect]
     Indication: DIABETES MELLITUS
     Route: 058

REACTIONS (4)
  - CEREBROVASCULAR ACCIDENT [None]
  - CHEST PAIN [None]
  - HYPERSOMNIA [None]
  - SYNCOPE [None]
